FAERS Safety Report 12216015 (Version 2)
Quarter: 2016Q1

REPORT INFORMATION
  Report Type: Report from Study
  Country: US (occurrence: US)
  Receive Date: 20160329
  Receipt Date: 20160331
  Transmission Date: 20160526
  Serious: Yes (Other)
  Sender: FDA-Public Use
  Company Number: US-ROCHE-1731745

PATIENT
  Sex: Female
  Weight: 54.93 kg

DRUGS (1)
  1. LUCENTIS [Suspect]
     Active Substance: RANIBIZUMAB
     Indication: NEOVASCULAR AGE-RELATED MACULAR DEGENERATION
     Dosage: LEFT EYE
     Route: 050
     Dates: start: 2015

REACTIONS (4)
  - Eye irritation [Recovered/Resolved with Sequelae]
  - Foreign body sensation in eyes [Recovered/Resolved with Sequelae]
  - Pain [Recovered/Resolved with Sequelae]
  - Scratch [Recovered/Resolved with Sequelae]

NARRATIVE: CASE EVENT DATE: 2015
